FAERS Safety Report 5912198-4 (Version None)
Quarter: 2008Q4

REPORT INFORMATION
  Report Type: 
  Country: None (occurrence: None)
  Receive Date: 20081008
  Receipt Date: 20080930
  Transmission Date: 20090506
  Serious: Yes (Hospitalization)
  Sender: FDA-Public Use
  Company Number: US-AVENTIS-200816525US

PATIENT
  Age: 55 Year
  Sex: Male

DRUGS (2)
  1. LANTUS [Suspect]
     Route: 058
     Dates: start: 20080301
  2. OPTICLIK (INSULIN INJECTION PEN) [Suspect]
     Dates: start: 20080701

REACTIONS (1)
  - MYOCARDIAL INFARCTION [None]
